FAERS Safety Report 24822805 (Version 1)
Quarter: 2025Q1

REPORT INFORMATION
  Report Type: Spontaneous
  Country: CA (occurrence: CA)
  Receive Date: 20250109
  Receipt Date: 20250109
  Transmission Date: 20250409
  Serious: Yes (Other)
  Sender: SANDOZ
  Company Number: CA-MLMSERVICE-20240711-PI129703-00336-1

PATIENT
  Age: 48 Year
  Sex: Female

DRUGS (6)
  1. ZOMETA [Suspect]
     Active Substance: ZOLEDRONIC ACID
     Indication: Invasive lobular breast carcinoma
     Route: 042
     Dates: start: 20221212, end: 202212
  2. ZOMETA [Suspect]
     Active Substance: ZOLEDRONIC ACID
     Indication: Metastases to bone
     Route: 065
  3. PALBOCICLIB [Concomitant]
     Active Substance: PALBOCICLIB
     Indication: Metastases to bone
     Dosage: 100 MG, QD
     Route: 065
     Dates: start: 20221202
  4. PALBOCICLIB [Concomitant]
     Active Substance: PALBOCICLIB
     Indication: Invasive lobular breast carcinoma
     Route: 065
  5. GOSERELIN [Concomitant]
     Active Substance: GOSERELIN
     Indication: Metastases to bone
     Route: 058
     Dates: end: 20221202
  6. GOSERELIN [Concomitant]
     Active Substance: GOSERELIN
     Indication: Invasive lobular breast carcinoma
     Route: 065

REACTIONS (2)
  - Periorbital inflammation [Recovered/Resolved]
  - Uveitis [Recovered/Resolved]

NARRATIVE: CASE EVENT DATE: 20221214
